FAERS Safety Report 5422453-2 (Version None)
Quarter: 2007Q3

REPORT INFORMATION
  Report Type: 
  Country: None (occurrence: None)
  Receive Date: 20070822
  Receipt Date: 20070813
  Transmission Date: 20080115
  Serious: Yes (Other)
  Sender: FDA-Public Use
  Company Number: NO-ASTRAZENECA-2007SE04396

PATIENT
  Sex: Female

DRUGS (3)
  1. ARIMIDEX [Suspect]
     Indication: BREAST CANCER
  2. PRAVACHOL [Concomitant]
  3. SUMATRIPTAN SUCCINATE [Concomitant]
     Indication: MIGRAINE

REACTIONS (1)
  - HEPATIC ENZYME INCREASED [None]
